FAERS Safety Report 5584560-3 (Version None)
Quarter: 2008Q1

REPORT INFORMATION
  Report Type: 
  Country: None (occurrence: None)
  Receive Date: 20080103
  Receipt Date: 20071224
  Transmission Date: 20080703
  Serious: Yes (Other)
  Sender: FDA-Public Use
  Company Number: CHNY2007NL04097

PATIENT
  Sex: Female

DRUGS (1)
  1. OTRIVIN [Suspect]
     Dosage: NASAL
     Route: 045
     Dates: start: 19920101

REACTIONS (1)
  - DRUG DEPENDENCE [None]
